FAERS Safety Report 5007034-7 (Version None)
Quarter: 2006Q2

REPORT INFORMATION
  Report Type: 
  Country: None (occurrence: None)
  Receive Date: 20060519
  Receipt Date: 20060310
  Transmission Date: 20061013
  Serious: Yes (Other)
  Sender: FDA-Public Use
  Company Number: US-AVENTIS-200612279US

PATIENT
  Sex: Female

DRUGS (4)
  1. KETEK [Suspect]
     Indication: BRONCHITIS
     Route: 048
     Dates: start: 20060227, end: 20060303
  2. ENTEX PSE [Concomitant]
     Dosage: DOSE: 120/400
     Route: 048
     Dates: start: 20060227, end: 20060301
  3. ALBUTEROL SULFATE AUTOHALER [Concomitant]
     Dosage: DOSE: UNKNOWN
  4. MOTRIN [Concomitant]
     Dosage: DOSE: UNK
     Route: 048

REACTIONS (6)
  - ALANINE AMINOTRANSFERASE INCREASED [None]
  - ASPARTATE AMINOTRANSFERASE INCREASED [None]
  - FATIGUE [None]
  - HEPATIC ENZYME INCREASED [None]
  - MYALGIA [None]
  - PAIN IN EXTREMITY [None]
